FAERS Safety Report 26030854 (Version 1)
Quarter: 2025Q4

REPORT INFORMATION
  Report Type: Spontaneous
  Country: GB (occurrence: GB)
  Receive Date: 20251112
  Receipt Date: 20251112
  Transmission Date: 20260119
  Serious: Yes (Other)
  Sender: AMGEN
  Company Number: GB-AMGEN-GBRSP2025221029

PATIENT
  Age: 2 Year

DRUGS (2)
  1. USTEKINUMAB [Suspect]
     Active Substance: USTEKINUMAB
     Indication: Crohn^s disease
     Dosage: UNK
     Route: 065
     Dates: start: 202411
  2. USTEKINUMAB [Suspect]
     Active Substance: USTEKINUMAB
     Indication: Rectal abscess

REACTIONS (2)
  - Crohn^s disease [Unknown]
  - Off label use [Unknown]
